FAERS Safety Report 11736413 (Version 1)
Quarter: 2015Q4

REPORT INFORMATION
  Report Type: Spontaneous
  Country: CA (occurrence: None)
  Receive Date: 20151112
  Receipt Date: 20151112
  Transmission Date: 20160304
  Serious: No
  Sender: FDA-Public Use
  Company Number: None

PATIENT
  Age: 72 Year
  Sex: Female
  Weight: 47.17 kg

DRUGS (4)
  1. OMEGA 3 DEEP SEA FISH OIL [Concomitant]
  2. VITAMIN D 3 [Concomitant]
  3. PROLIA [Suspect]
     Active Substance: DENOSUMAB
     Dosage: NEEDLE EVERY 6 MONTHS 60MG 6 MONTHS INTO THE MUSCLE
     Route: 030
     Dates: start: 20131110, end: 20151110
  4. PROLIA [Concomitant]
     Active Substance: DENOSUMAB

REACTIONS (2)
  - Amnesia [None]
  - Memory impairment [None]

NARRATIVE: CASE EVENT DATE: 20151101
